FAERS Safety Report 8282232-8 (Version None)
Quarter: 2012Q2

REPORT INFORMATION
  Report Type: 
  Country: None (occurrence: None)
  Receive Date: 20120413
  Receipt Date: 20120404
  Transmission Date: 20120825
  Serious: Yes (Death)
  Sender: FDA-Public Use
  Company Number: US-PFIZER INC-2011310636

PATIENT
  Age: 52 Year
  Sex: Male

DRUGS (2)
  1. LORAZEPAM [Suspect]
  2. OXYCODONE HCL [Suspect]
     Dosage: UNK
     Route: 048

REACTIONS (4)
  - CARDIAC ARREST [None]
  - TOXICITY TO VARIOUS AGENTS [None]
  - RESPIRATORY ARREST [None]
  - DEATH [None]
